FAERS Safety Report 8202404-8 (Version None)
Quarter: 2012Q1

REPORT INFORMATION
  Report Type: 
  Country: None (occurrence: None)
  Receive Date: 20120312
  Receipt Date: 20110910
  Transmission Date: 20120608
  Serious: No
  Sender: FDA-Public Use
  Company Number: US-ABBOTT-11P-163-0731120-00

PATIENT
  Sex: Female

DRUGS (2)
  1. DEPAKOTE [Suspect]
     Indication: ANXIETY
  2. DEPAKOTE [Suspect]
     Indication: DEPRESSION
     Dates: start: 20060101, end: 20100101

REACTIONS (2)
  - TOOTH EROSION [None]
  - TOOTH FRACTURE [None]
